FAERS Safety Report 5777006-3 (Version None)
Quarter: 2008Q2

REPORT INFORMATION
  Report Type: 
  Country: None (occurrence: None)
  Receive Date: 20080618
  Receipt Date: 20080514
  Transmission Date: 20081010
  Serious: No
  Sender: FDA-Public Use
  Company Number: US-ASTRAZENECA-2008UW07138

PATIENT
  Age: 22193 Day
  Sex: Female
  Weight: 50.9 kg

DRUGS (3)
  1. SYMBICORT [Suspect]
     Indication: ASTHMA
     Dosage: 80/4.5  1 PUFF BID
     Route: 055
     Dates: start: 20080320
  2. SYMBICORT [Suspect]
     Dosage: 80/4.5  1 PUFF ONCE A DAY
     Route: 055
     Dates: start: 20080320
  3. PULMICORT FLEXHALER [Suspect]
     Indication: ASTHMA
     Route: 055

REACTIONS (4)
  - HEADACHE [None]
  - MUSCULOSKELETAL DISCOMFORT [None]
  - NECK PAIN [None]
  - PAIN IN JAW [None]
